FAERS Safety Report 8708665 (Version 3)
Quarter: 2013Q4

REPORT INFORMATION
  Report Type: Report from Study
  Country: US (occurrence: US)
  Receive Date: 20120806
  Receipt Date: 20131031
  Transmission Date: 20140711
  Serious: Yes (Other)
  Sender: FDA-Public Use
  Company Number: US-009507513-2012SP023676

PATIENT
  Age: 62 Year
  Sex: Male

DRUGS (4)
  1. VICTRELIS [Suspect]
     Indication: CHRONIC HEPATITIS C
     Dosage: UNK
     Dates: start: 20111212
  2. COPEGUS [Suspect]
     Indication: CHRONIC HEPATITIS C
     Dosage: 1200 MG, 1 IN 1 DAY
     Route: 048
     Dates: start: 20111113
  3. COPEGUS [Suspect]
     Dosage: 600 MG, 1 IN 1 DAY
     Route: 048
     Dates: start: 20120125
  4. PEGASYS [Suspect]
     Indication: CHRONIC HEPATITIS C
     Dosage: 180 MICROGRAM, 1 IN 1 WEEK
     Route: 058
     Dates: start: 20111113

REACTIONS (20)
  - Cystitis radiation [Unknown]
  - Blood urine present [Unknown]
  - Emotional disorder [Unknown]
  - Syncope [Unknown]
  - Full blood count decreased [Unknown]
  - Pain in jaw [Unknown]
  - Dyspnoea [Unknown]
  - Pain [Unknown]
  - Abdominal pain lower [Unknown]
  - Musculoskeletal pain [Unknown]
  - Cyst [Unknown]
  - Nerve injury [Unknown]
  - Back pain [Unknown]
  - Joint injury [Unknown]
  - Irritability [Unknown]
  - Fatigue [Unknown]
  - Haemoglobin decreased [Unknown]
  - Insomnia [Unknown]
  - Arthralgia [Unknown]
  - Musculoskeletal discomfort [Unknown]
